FAERS Safety Report 15750260 (Version 1)
Quarter: 2018Q4

REPORT INFORMATION
  Report Type: Spontaneous
  Country: US (occurrence: US)
  Receive Date: 20181205
  Receipt Date: 20181205
  Transmission Date: 20190205
  Serious: No
  Sender: FDA-Public Use
  Company Number: None

PATIENT
  Age: 71 Year
  Sex: Female

DRUGS (2)
  1. GLATOPA [Suspect]
     Active Substance: GLATIRAMER ACETATE
     Route: 058
     Dates: start: 201711
  2. AMPYRA [Suspect]
     Active Substance: DALFAMPRIDINE

REACTIONS (2)
  - Gait disturbance [None]
  - Product dose omission [None]

NARRATIVE: CASE EVENT DATE: 20181204
